FAERS Safety Report 21669654 (Version 1)
Quarter: 2022Q4

REPORT INFORMATION
  Report Type: Other
  Country: None (occurrence: US)
  Receive Date: 20221201
  Receipt Date: 20221201
  Transmission Date: 20230113
  Serious: Yes (Other)
  Sender: FDA-Public Use
  Company Number: US-Vi-Jon Inc.-2135439

PATIENT
  Age: 64 Year
  Sex: Male

DRUGS (1)
  1. MAGNESIUM CITRATE LEMON [Suspect]
     Active Substance: MAGNESIUM CITRATE
     Indication: Medical procedure
     Route: 048
     Dates: start: 20220622, end: 20220625

REACTIONS (1)
  - Colitis [Recovered/Resolved]

NARRATIVE: CASE EVENT DATE: 20220622
